FAERS Safety Report 5895504-9 (Version None)
Quarter: 2008Q3

REPORT INFORMATION
  Report Type: 
  Country: None (occurrence: None)
  Receive Date: 20080819
  Receipt Date: 20071115
  Transmission Date: 20090109
  Serious: Yes (Hospitalization)
  Sender: FDA-Public Use
  Company Number: 532009

PATIENT
  Age: 2 Month
  Sex: Male

DRUGS (2)
  1. CYTOVENE IV [Suspect]
     Indication: CYTOMEGALOVIRUS TEST
     Dosage: 5 MG/KG 2 PER DAY INTRAVENOUS
     Route: 042
  2. UNSPECIFIED OTHER MEDICATION (GENERIC UNKNOWN) [Concomitant]

REACTIONS (1)
  - ANAEMIA [None]
